FAERS Safety Report 6611534-3 (Version None)
Quarter: 2010Q1

REPORT INFORMATION
  Report Type: 
  Country: None (occurrence: None)
  Receive Date: 20100303
  Receipt Date: 20100219
  Transmission Date: 20100710
  Serious: Yes (Hospitalization, Other)
  Sender: FDA-Public Use
  Company Number: PHHY2010FR08566

PATIENT
  Sex: Female

DRUGS (2)
  1. VOLTAREN [Suspect]
     Dosage: 2 TO 3 DF DAILY
     Route: 048
     Dates: start: 20100109, end: 20100113
  2. SIMVASTATIN [Concomitant]
     Indication: DYSLIPIDAEMIA
     Dosage: UNK

REACTIONS (10)
  - CARDIAC FAILURE [None]
  - DECREASED APPETITE [None]
  - DYSPNOEA [None]
  - ESCHERICHIA INFECTION [None]
  - INFLAMMATION [None]
  - MITRAL VALVE INCOMPETENCE [None]
  - OEDEMA PERIPHERAL [None]
  - PYREXIA [None]
  - THIRST [None]
  - WEIGHT INCREASED [None]
